FAERS Safety Report 9088985 (Version 3)
Quarter: 2013Q1

REPORT INFORMATION
  Report Type: Spontaneous
  Country: US (occurrence: US)
  Receive Date: 20130201
  Receipt Date: 20130319
  Transmission Date: 20140127
  Serious: Yes (Disabling, Other)
  Sender: FDA-Public Use
  Company Number: US-PFIZER INC-2013043231

PATIENT
  Age: 51 Year
  Sex: Female
  Weight: 67 kg

DRUGS (14)
  1. LYRICA [Suspect]
     Indication: FIBROMYALGIA
     Dosage: 150 MG, 2X/DAY
     Route: 048
     Dates: start: 2010
  2. ADVAIR [Concomitant]
     Indication: CHRONIC OBSTRUCTIVE PULMONARY DISEASE
     Dosage: 250 MG, 2X/DAY
  3. ADVAIR [Concomitant]
     Dosage: UNK
  4. FLONASE [Concomitant]
     Indication: CHRONIC OBSTRUCTIVE PULMONARY DISEASE
     Dosage: UNK (ONE SQUIRT IN EACH NOSTRIL), DAILY
  5. FLONASE [Concomitant]
     Indication: HYPERSENSITIVITY
     Dosage: UNK
  6. SINGULAIR [Concomitant]
     Indication: CHRONIC OBSTRUCTIVE PULMONARY DISEASE
     Dosage: 10 MG, DAILY
  7. SINGULAIR [Concomitant]
     Indication: HYPERSENSITIVITY
     Dosage: UNK
  8. ALBUTEROL [Concomitant]
     Indication: CHRONIC OBSTRUCTIVE PULMONARY DISEASE
     Dosage: UNK
  9. ALBUTEROL [Concomitant]
     Indication: ASTHMA
  10. VENTOLIN HFA [Concomitant]
     Dosage: UNK
  11. ZANTAC [Concomitant]
     Indication: DYSPEPSIA
     Dosage: UNK
  12. PERCOCET [Concomitant]
     Dosage: UNK
  13. SOMA [Concomitant]
     Dosage: UNK
  14. XANAX [Concomitant]
     Dosage: UNK

REACTIONS (7)
  - Spinal compression fracture [Recovering/Resolving]
  - Musculoskeletal disorder [Not Recovered/Not Resolved]
  - Pulmonary mass [Not Recovered/Not Resolved]
  - Drug ineffective [Unknown]
  - Muscle spasms [Unknown]
  - Blood magnesium decreased [Unknown]
  - Pain [Recovering/Resolving]
